FAERS Safety Report 9128601 (Version 1)
Quarter: 2013Q1

REPORT INFORMATION
  Report Type: Spontaneous
  Country: US (occurrence: US)
  Receive Date: 20130125
  Receipt Date: 20130125
  Transmission Date: 20140127
  Serious: Yes (Other)
  Sender: FDA-Public Use
  Company Number: US-009507513-1201USA04160

PATIENT
  Age: 9 Year
  Sex: Male
  Weight: 32.21 kg

DRUGS (3)
  1. SINGULAIR [Suspect]
     Indication: RHINITIS ALLERGIC
     Dosage: 5 MG, QD
     Route: 048
     Dates: start: 20100101, end: 20100812
  2. NASONEX [Suspect]
  3. ZYRTEC [Suspect]

REACTIONS (2)
  - Crying [Unknown]
  - Depressed mood [Unknown]
